FAERS Safety Report 11438649 (Version 1)
Quarter: 2015Q3

REPORT INFORMATION
  Report Type: Spontaneous
  Country: US (occurrence: US)
  Receive Date: 20150901
  Receipt Date: 20150901
  Transmission Date: 20151125
  Serious: Yes (Other)
  Sender: FDA-Public Use
  Company Number: US-ROCHE-1150428

PATIENT
  Sex: Female
  Weight: 56.75 kg

DRUGS (3)
  1. PEGASYS [Suspect]
     Active Substance: PEGINTERFERON ALFA-2A
     Indication: THROMBOCYTOSIS
     Route: 058
     Dates: start: 20120328
  2. METOPROLOL [Concomitant]
     Active Substance: METOPROLOL
     Route: 048
  3. PEGASYS [Suspect]
     Active Substance: PEGINTERFERON ALFA-2A
     Route: 050

REACTIONS (6)
  - Atrial fibrillation [Unknown]
  - White blood cell count decreased [Unknown]
  - Haemoglobin decreased [Unknown]
  - Haematocrit decreased [Unknown]
  - Thrombocytosis [Unknown]
  - Cardiac disorder [Unknown]
